FAERS Safety Report 25488228 (Version 2)
Quarter: 2025Q4

REPORT INFORMATION
  Report Type: Spontaneous
  Country: US (occurrence: US)
  Receive Date: 20250627
  Receipt Date: 20251027
  Transmission Date: 20260117
  Serious: Yes (Hospitalization)
  Sender: PFIZER
  Company Number: US-PFIZER INC-PV202500075958

PATIENT
  Age: 61 Year
  Sex: Male

DRUGS (2)
  1. ZAVZPRET [Suspect]
     Active Substance: ZAVEGEPANT HYDROCHLORIDE
     Indication: Migraine
     Dosage: UNK
  2. BOTOX [Concomitant]
     Active Substance: ONABOTULINUMTOXINA
     Dosage: UNK

REACTIONS (4)
  - Cerebrovascular accident [Unknown]
  - Cerebral haemorrhage [Unknown]
  - Therapeutic response unexpected [Unknown]
  - Ocular hyperaemia [Unknown]
